FAERS Safety Report 25005279 (Version 1)
Quarter: 2025Q1

REPORT INFORMATION
  Report Type: Spontaneous
  Country: GB (occurrence: GB)
  Receive Date: 20250224
  Receipt Date: 20250224
  Transmission Date: 20250409
  Serious: Yes (Life-Threatening, Disabling, Other)
  Sender: BOEHRINGER INGELHEIM
  Company Number: GB-MHRA-WEBRADR-202502211901588390-YJSRB

PATIENT
  Age: 61 Year
  Sex: Male
  Weight: 64 kg

DRUGS (1)
  1. JARDIANCE [Suspect]
     Active Substance: EMPAGLIFLOZIN
     Indication: Diabetes mellitus
     Dates: start: 20241101, end: 20250101

REACTIONS (1)
  - Urinary tract infection fungal [Recovered/Resolved]

NARRATIVE: CASE EVENT DATE: 20241106
